FAERS Safety Report 5507248-3 (Version None)
Quarter: 2007Q4

REPORT INFORMATION
  Report Type: 
  Country: None (occurrence: None)
  Receive Date: 20071105
  Receipt Date: 20071105
  Transmission Date: 20080405
  Serious: Yes (Hospitalization)
  Sender: FDA-Public Use
  Company Number: None

PATIENT
  Age: 45 Year
  Sex: Female
  Weight: 99.4 kg

DRUGS (15)
  1. SEROQUEL [Suspect]
     Indication: ANXIETY
     Dosage: 100MG PO BID ESTIMATED DURATION OF USE OF 2-3 WEEKS
     Route: 048
  2. SEROQUEL [Suspect]
     Indication: DEPRESSION
     Dosage: 100MG PO BID ESTIMATED DURATION OF USE OF 2-3 WEEKS
     Route: 048
  3. SEROQUEL [Suspect]
     Indication: INSOMNIA
     Dosage: 100MG PO BID ESTIMATED DURATION OF USE OF 2-3 WEEKS
     Route: 048
  4. SEROQUEL [Suspect]
     Indication: ANXIETY
     Dosage: 50MG PO BID ESTIMATED DURATION OF USE OF 2-3 WEEKS
     Route: 048
  5. SEROQUEL [Suspect]
     Indication: DEPRESSION
     Dosage: 50MG PO BID ESTIMATED DURATION OF USE OF 2-3 WEEKS
     Route: 048
  6. SEROQUEL [Suspect]
     Indication: INSOMNIA
     Dosage: 50MG PO BID ESTIMATED DURATION OF USE OF 2-3 WEEKS
     Route: 048
  7. ACYCLOVIR [Concomitant]
  8. AMITRIPTYLINE HCL [Concomitant]
  9. LOVENOX [Concomitant]
  10. ALLEGRA [Concomitant]
  11. FLOVENT [Concomitant]
  12. FLONASE [Concomitant]
  13. ROZEREM [Concomitant]
  14. PROTONIX [Concomitant]
  15. LYRICA [Concomitant]

REACTIONS (4)
  - HEPATIC ENZYME INCREASED [None]
  - MENTAL STATUS CHANGES [None]
  - RASH GENERALISED [None]
  - RHABDOMYOLYSIS [None]
